FAERS Safety Report 14851974 (Version 1)
Quarter: 2018Q2

REPORT INFORMATION
  Report Type: Report from Study
  Country: DE (occurrence: DE)
  Receive Date: 20180507
  Receipt Date: 20180507
  Transmission Date: 20180711
  Serious: Yes (Death, Other)
  Sender: FDA-Public Use
  Company Number: DE-ACCORD-066666

PATIENT

DRUGS (2)
  1. CISPLATIN. [Suspect]
     Active Substance: CISPLATIN
     Indication: EPITHELIOID MESOTHELIOMA
     Dosage: 7.5 MG/M2 BODY SURFACE IN A TOTAL VOLUME OF 150 ML NACL 0.9%
     Route: 033
  2. DOXORUBICIN [Suspect]
     Active Substance: DOXORUBICIN
     Indication: EPITHELIOID MESOTHELIOMA
     Dosage: 1.5 MG/M2 BODY SURFACE IN A TOTAL VOLUME OF 50 ML NACL 0.9%
     Route: 033

REACTIONS (3)
  - Tumour lysis syndrome [Unknown]
  - Off label use [Unknown]
  - Acute kidney injury [Fatal]
